FAERS Safety Report 8470466-9 (Version None)
Quarter: 2012Q2

REPORT INFORMATION
  Report Type: 
  Country: None (occurrence: None)
  Receive Date: 20120627
  Receipt Date: 20120512
  Transmission Date: 20120825
  Serious: Yes (Other)
  Sender: FDA-Public Use
  Company Number: FR-PFIZER INC-2012151705

PATIENT
  Age: 68 Year

DRUGS (1)
  1. VFEND [Suspect]
     Indication: BRONCHOPULMONARY ASPERGILLOSIS
     Dosage: UNK

REACTIONS (4)
  - BOWEN'S DISEASE [None]
  - SQUAMOUS CELL CARCINOMA [None]
  - PHOTOSENSITIVITY REACTION [None]
  - PRECANCEROUS SKIN LESION [None]
